FAERS Safety Report 4576896-X (Version None)
Quarter: 2005Q1

REPORT INFORMATION
  Report Type: 
  Country: None (occurrence: None)
  Receive Date: 20050210
  Receipt Date: 20050105
  Transmission Date: 20050727
  Serious: Yes (Other)
  Sender: FDA-Public Use
  Company Number: US-AMGEN-US106300

PATIENT
  Sex: Male
  Weight: 101.7 kg

DRUGS (3)
  1. ENBREL [Suspect]
     Indication: PSORIASIS
     Route: 058
     Dates: start: 20040607, end: 20050106
  2. DOVONEX [Concomitant]
  3. METOPROLOL [Concomitant]

REACTIONS (2)
  - ALANINE AMINOTRANSFERASE INCREASED [None]
  - DRUG INEFFECTIVE [None]
